FAERS Safety Report 5404193-9 (Version None)
Quarter: 2007Q3

REPORT INFORMATION
  Report Type: 
  Country: None (occurrence: None)
  Receive Date: 20070731
  Receipt Date: 20070723
  Transmission Date: 20080115
  Serious: Yes (Hospitalization, Other)
  Sender: FDA-Public Use
  Company Number: 07H-163-0312921-00

PATIENT
  Age: 27 Year
  Sex: Male

DRUGS (4)
  1. EPHEDRINE SULFATE INJECTION (EPHEDRINE SULFATE) (EPHEDRINE SULFATE) [Suspect]
  2. VALPROIC ACID [Concomitant]
  3. OLANZAPINE [Concomitant]
  4. RISPERIDONE [Concomitant]

REACTIONS (4)
  - BLOOD CREATINE PHOSPHOKINASE INCREASED [None]
  - DRUG ABUSER [None]
  - HYPOMANIA [None]
  - MANIA [None]
